FAERS Safety Report 5695189-0 (Version None)
Quarter: 2008Q2

REPORT INFORMATION
  Report Type: 
  Country: None (occurrence: None)
  Receive Date: 20080404
  Receipt Date: 20080325
  Transmission Date: 20081010
  Serious: Yes (Disabling, Other)
  Sender: FDA-Public Use
  Company Number: US-PFIZER INC-2008027097

PATIENT
  Sex: Female
  Weight: 50 kg

DRUGS (2)
  1. CHANTIX [Suspect]
     Indication: SMOKING CESSATION THERAPY
     Route: 048
     Dates: start: 20071001, end: 20071201
  2. ANTIDEPRESSANTS [Concomitant]
     Route: 048

REACTIONS (5)
  - DEPRESSION [None]
  - DISABILITY [None]
  - FATIGUE [None]
  - HYPERSOMNIA [None]
  - SUICIDAL IDEATION [None]
